FAERS Safety Report 8879903 (Version 1)
Quarter: 2012Q4

REPORT INFORMATION
  Report Type: 
  Country: US (occurrence: US)
  Receive Date: 20121101
  Receipt Date: 20121101
  Transmission Date: 20130627
  Serious: No
  Sender: FDA-Public Use
  Company Number: US-009507513-1210USA012624

PATIENT
  Sex: Female

DRUGS (4)
  1. PROVENTIL [Suspect]
     Indication: ASTHMA
     Dosage: 3 DF, qd
     Route: 055
     Dates: start: 2010, end: 20121022
  2. SINGULAIR [Concomitant]
  3. CYMBALTA [Concomitant]
  4. [THERAPY UNSPECIFIED] [Concomitant]

REACTIONS (2)
  - Palpitations [Not Recovered/Not Resolved]
  - Extrasystoles [Not Recovered/Not Resolved]
